FAERS Safety Report 16430437 (Version 1)
Quarter: 2019Q2

REPORT INFORMATION
  Report Type: Other
  Country: US (occurrence: ES)
  Receive Date: 20190614
  Receipt Date: 20190614
  Transmission Date: 20190711
  Serious: Yes (Life-Threatening, Hospitalization)
  Sender: FDA-Public Use
  Company Number: ES-BRECKENRIDGE PHARMACEUTICAL, INC.-2068225

PATIENT
  Age: 24 Year
  Sex: Female

DRUGS (3)
  1. PALIPERIDONE. [Concomitant]
     Active Substance: PALIPERIDONE
  2. OXCARBAZEPINE. [Suspect]
     Active Substance: OXCARBAZEPINE
     Route: 048
  3. RISPERIDONE. [Suspect]
     Active Substance: RISPERIDONE
     Route: 048

REACTIONS (1)
  - Catatonia [None]
